FAERS Safety Report 10089848 (Version 1)
Quarter: 2014Q2

REPORT INFORMATION
  Report Type: Spontaneous
  Country: JP (occurrence: None)
  Receive Date: 20140417
  Receipt Date: 20140417
  Transmission Date: 20141212
  Serious: Yes (Hospitalization)
  Sender: FDA-Public Use
  Company Number: 1362296

PATIENT
  Age: 76 Year
  Sex: Male

DRUGS (1)
  1. HYDROCORTISONE [Suspect]
     Indication: HYPOPHYSITIS

REACTIONS (1)
  - Diabetes insipidus [None]
